FAERS Safety Report 9798140 (Version 2)
Quarter: 2014Q1

REPORT INFORMATION
  Report Type: Spontaneous
  Country: IT (occurrence: IT)
  Receive Date: 20140106
  Receipt Date: 20140130
  Transmission Date: 20141002
  Serious: Yes (Other)
  Sender: FDA-Public Use
  Company Number: IT-TEVA-454169ISR

PATIENT
  Age: 32 Year
  Sex: Male

DRUGS (1)
  1. RISPERIDONE [Suspect]
     Indication: SCHIZOPHRENIA
     Dosage: 2 MILLIGRAM DAILY;
     Route: 048
     Dates: start: 20120110, end: 20131028

REACTIONS (2)
  - Drug effect decreased [Recovering/Resolving]
  - Hearing impaired [Recovering/Resolving]
